FAERS Safety Report 7623230-4 (Version None)
Quarter: 2011Q3

REPORT INFORMATION
  Report Type: 
  Country: None (occurrence: None)
  Receive Date: 20110720
  Receipt Date: 20110713
  Transmission Date: 20111222
  Serious: Yes (Hospitalization, Other)
  Sender: FDA-Public Use
  Company Number: MX-SANOFI-AVENTIS-2011SA044913

PATIENT
  Age: 55 Year
  Sex: Male

DRUGS (2)
  1. INSULIN GLARGINE [Suspect]
     Route: 058
     Dates: start: 20110301, end: 20110701
  2. INSULIN GLARGINE [Suspect]
     Route: 058
     Dates: start: 20090101, end: 20110301

REACTIONS (2)
  - PULMONARY OEDEMA [None]
  - HYPOGLYCAEMIA [None]
